FAERS Safety Report 5619321-X (Version None)
Quarter: 2008Q1

REPORT INFORMATION
  Report Type: 
  Country: None (occurrence: None)
  Receive Date: 20080114
  Receipt Date: 20070314
  Transmission Date: 20080703
  Serious: Yes (Other)
  Sender: FDA-Public Use
  Company Number: A03200701985

PATIENT
  Sex: Female

DRUGS (2)
  1. PLAVIX [Suspect]
     Indication: CORONARY ARTERIAL STENT INSERTION
     Dosage: ORAL
     Route: 048
     Dates: start: 19991101
  2. ACETYLSALICYLIC ACID SRT [Concomitant]

REACTIONS (2)
  - BLINDNESS [None]
  - GASTROINTESTINAL HAEMORRHAGE [None]
